FAERS Safety Report 24570297 (Version 1)
Quarter: 2024Q4

REPORT INFORMATION
  Report Type: Spontaneous
  Country: VC (occurrence: VC)
  Receive Date: 20241031
  Receipt Date: 20241031
  Transmission Date: 20250115
  Serious: Yes (Other)
  Sender: SUNOVION
  Company Number: VC-SMPA-2024SPA004425

PATIENT

DRUGS (6)
  1. MYFEMBREE [Suspect]
     Active Substance: ESTRADIOL HEMIHYDRATE\NORETHINDRONE ACETATE\RELUGOLIX
     Indication: Uterine leiomyoma
     Dosage: UNK
     Route: 048
  2. MYFEMBREE [Suspect]
     Active Substance: ESTRADIOL HEMIHYDRATE\NORETHINDRONE ACETATE\RELUGOLIX
     Indication: Ovarian cyst
  3. MYFEMBREE [Suspect]
     Active Substance: ESTRADIOL HEMIHYDRATE\NORETHINDRONE ACETATE\RELUGOLIX
     Indication: Abnormal uterine bleeding
  4. ORTHO MICRONOR [Suspect]
     Active Substance: NORETHINDRONE
     Indication: Uterine leiomyoma
     Dosage: UNK
     Route: 065
  5. ORTHO MICRONOR [Suspect]
     Active Substance: NORETHINDRONE
     Indication: Ovarian cyst
  6. ORTHO MICRONOR [Suspect]
     Active Substance: NORETHINDRONE
     Indication: Abnormal uterine bleeding

REACTIONS (5)
  - Salpingectomy [Unknown]
  - Hysterectomy [Unknown]
  - Ovarian cystectomy [Unknown]
  - Adhesiolysis [Unknown]
  - Therapeutic product effect decreased [Unknown]

NARRATIVE: CASE EVENT DATE: 20240501
